FAERS Safety Report 4301080-4 (Version None)
Quarter: 2004Q1

REPORT INFORMATION
  Report Type: 
  Country: None (occurrence: None)
  Receive Date: 20040218
  Receipt Date: 20040129
  Transmission Date: 20041129
  Serious: Yes (Other)
  Sender: FDA-Public Use
  Company Number: USA040157865

PATIENT
  Age: 74 Year
  Sex: Female
  Weight: 93 kg

DRUGS (7)
  1. HUMULIN 70/30 [Suspect]
     Dosage: 31 U/DAY
  2. FUROSEMIDE [Concomitant]
  3. DEMADEX [Concomitant]
  4. MULTI-VITAMIN [Concomitant]
  5. MAGNESIUM [Concomitant]
  6. POTASSIUM [Concomitant]
  7. VITAMIN E [Concomitant]

REACTIONS (4)
  - CARDIAC DISORDER [None]
  - CARDIAC FAILURE [None]
  - PRURITUS [None]
  - RASH [None]
